FAERS Safety Report 14680205 (Version 2)
Quarter: 2018Q2

REPORT INFORMATION
  Report Type: Spontaneous
  Country: PT (occurrence: PT)
  Receive Date: 20180326
  Receipt Date: 20180619
  Transmission Date: 20180711
  Serious: Yes (Hospitalization, Other)
  Sender: FDA-Public Use
  Company Number: PT-BAYER-2018-052228

PATIENT
  Age: 59 Year
  Sex: Female

DRUGS (2)
  1. NEXAVAR [Suspect]
     Active Substance: SORAFENIB
     Indication: PAPILLARY THYROID CANCER
     Dosage: 400 MG, BID
     Dates: start: 2017
  2. NEXAVAR [Suspect]
     Active Substance: SORAFENIB
     Indication: PAPILLARY THYROID CANCER
     Dosage: DAILY DOSE 200 MG

REACTIONS (6)
  - Type 1 diabetes mellitus [None]
  - Asthenia [None]
  - Diabetic ketoacidosis [None]
  - Weight decreased [None]
  - Urticaria [None]
  - Diabetes insipidus [None]
